FAERS Safety Report 7341598-3 (Version None)
Quarter: 2011Q1

REPORT INFORMATION
  Report Type: 
  Country: None (occurrence: None)
  Receive Date: 20110228
  Receipt Date: 20110210
  Transmission Date: 20110831
  Serious: Yes (Hospitalization)
  Sender: FDA-Public Use
  Company Number: 2011-00025

PATIENT
  Age: 33 Year
  Sex: Male

DRUGS (3)
  1. LOSARTAN POTASSIUM [Suspect]
     Indication: PRODUCT USED FOR UNKNOWN INDICATION
     Dosage: 100 MG (100 MG, 1 IN 1 D),
  2. LISINOPRIL [Suspect]
     Indication: PRODUCT USED FOR UNKNOWN INDICATION
     Dosage: 20 MG (20 MG, 1 IN 1 D),
  3. ALLOPURINOL [Suspect]
     Indication: HYPERURICAEMIA
     Dosage: 300 MG (300 MG, 1 IN 1 D)

REACTIONS (14)
  - HYPOTENSION [None]
  - MALAISE [None]
  - TACHYPNOEA [None]
  - DRUG RASH WITH EOSINOPHILIA AND SYSTEMIC SYMPTOMS [None]
  - OROPHARYNGEAL PAIN [None]
  - PYREXIA [None]
  - PERIORBITAL OEDEMA [None]
  - RASH MORBILLIFORM [None]
  - RASH GENERALISED [None]
  - RENAL IMPAIRMENT [None]
  - FATIGUE [None]
  - TACHYCARDIA [None]
  - HYPOVOLAEMIA [None]
  - SEPSIS [None]
